FAERS Safety Report 9308603 (Version 1)
Quarter: 2013Q2

REPORT INFORMATION
  Report Type: Report from Study
  Country: CA (occurrence: CA)
  Receive Date: 20130524
  Receipt Date: 20130524
  Transmission Date: 20140414
  Serious: Yes (Disabling, Other)
  Sender: FDA-Public Use
  Company Number: CA-JNJFOC-20130511119

PATIENT
  Sex: Female
  Weight: 62.6 kg

DRUGS (2)
  1. STELARA [Suspect]
     Indication: PSORIATIC ARTHROPATHY
  2. PREDNISONE [Suspect]
     Indication: PSORIATIC ARTHROPATHY

REACTIONS (4)
  - Weight increased [Unknown]
  - Therapeutic response decreased [Unknown]
  - Pustular psoriasis [Unknown]
  - Psoriatic arthropathy [Unknown]
